FAERS Safety Report 4268610-2 (Version None)
Quarter: 2004Q1

REPORT INFORMATION
  Report Type: 
  Country: None (occurrence: None)
  Receive Date: 20040109
  Receipt Date: 20040109
  Transmission Date: 20041129
  Serious: Yes (Hospitalization)
  Sender: FDA-Public Use
  Company Number: None

PATIENT
  Age: 71 Year
  Sex: Female
  Weight: 65.318 kg

DRUGS (8)
  1. CRESTOR [Suspect]
     Dates: start: 20031201
  2. ZESTRIL [Concomitant]
  3. COUMADIN [Concomitant]
  4. ATENOLOL [Concomitant]
  5. VIT C [Concomitant]
  6. VIT E [Concomitant]
  7. ASPIRIN [Concomitant]
  8. PERSONIE [Concomitant]

REACTIONS (3)
  - DRUG INTERACTION [None]
  - INTERNATIONAL NORMALISED RATIO INCREASED [None]
  - MYALGIA [None]
